FAERS Safety Report 8548295-7 (Version None)
Quarter: 2012Q3

REPORT INFORMATION
  Report Type: 
  Country: None (occurrence: None)
  Receive Date: 20120730
  Receipt Date: 20120720
  Transmission Date: 20120928
  Serious: Yes (Hospitalization, Other)
  Sender: FDA-Public Use
  Company Number: CA-JNJFOC-20111206442

PATIENT
  Sex: Female
  Weight: 68.8 kg

DRUGS (1)
  1. REMICADE [Suspect]
     Indication: RHEUMATOID ARTHRITIS
     Route: 042

REACTIONS (6)
  - VAGINAL INFECTION [None]
  - CLOSTRIDIAL INFECTION [None]
  - SINUSITIS [None]
  - DYSPNOEA [None]
  - INFLUENZA [None]
  - DIARRHOEA [None]
